FAERS Safety Report 5496730-3 (Version None)
Quarter: 2007Q4

REPORT INFORMATION
  Report Type: 
  Country: None (occurrence: None)
  Receive Date: 20071025
  Receipt Date: 20070807
  Transmission Date: 20080405
  Serious: No
  Sender: FDA-Public Use
  Company Number: A0668664A

PATIENT
  Age: 79 Year
  Sex: Female

DRUGS (5)
  1. ADVAIR DISKUS 100/50 [Suspect]
     Indication: CHRONIC OBSTRUCTIVE PULMONARY DISEASE
     Dosage: 1PUFF TWICE PER DAY
     Route: 055
     Dates: start: 20011201
  2. OSCAL [Concomitant]
  3. PROCARDIA [Concomitant]
  4. EVISTA [Concomitant]
  5. ALEVE [Concomitant]

REACTIONS (1)
  - FALL [None]
